FAERS Safety Report 7623311-5 (Version None)
Quarter: 2011Q3

REPORT INFORMATION
  Report Type: 
  Country: None (occurrence: None)
  Receive Date: 20110720
  Receipt Date: 20110705
  Transmission Date: 20111222
  Serious: Yes (Hospitalization, Other)
  Sender: FDA-Public Use
  Company Number: US-ROCHE-776109

PATIENT
  Sex: Female
  Weight: 54 kg

DRUGS (6)
  1. PROPRANOLOL [Concomitant]
     Route: 048
  2. OXYCONTIN [Concomitant]
     Route: 048
  3. LISINOPRIL [Concomitant]
  4. ACTEMRA [Suspect]
     Indication: RHEUMATOID ARTHRITIS
     Dosage: FORM: INFUSION
     Route: 042
     Dates: start: 20110330, end: 20110505
  5. ASPIRIN [Concomitant]
     Route: 048
  6. CORTICOSTEROIDS [Concomitant]

REACTIONS (11)
  - DYSPNOEA [None]
  - HYPERTENSION [None]
  - DISCOMFORT [None]
  - BACK PAIN [None]
  - DEHYDRATION [None]
  - ATRIAL FIBRILLATION [None]
  - LOSS OF CONSCIOUSNESS [None]
  - DEPRESSED LEVEL OF CONSCIOUSNESS [None]
  - FLUSHING [None]
  - BLOOD PRESSURE DECREASED [None]
  - CHEST PAIN [None]
